FAERS Safety Report 5844476-1 (Version None)
Quarter: 2008Q3

REPORT INFORMATION
  Report Type: 
  Country: None (occurrence: None)
  Receive Date: 20080812
  Receipt Date: 20080806
  Transmission Date: 20090109
  Serious: Yes (Hospitalization, Other)
  Sender: FDA-Public Use
  Company Number: US024046

PATIENT
  Age: 66 Year
  Sex: Male
  Weight: 72.4848 kg

DRUGS (2)
  1. TREANDA [Suspect]
     Indication: CHRONIC LYMPHOCYTIC LEUKAEMIA
     Dosage: 187 MG DAY 1 AND 2, Q28 DAYS INTRAVENOUS
     Route: 042
     Dates: start: 20080618, end: 20080619
  2. RITUXAN [Suspect]
     Dosage: 700 MG DAY 1 Q 28 DAYS
     Route: 042

REACTIONS (10)
  - BLOOD MAGNESIUM DECREASED [None]
  - CARDIOMEGALY [None]
  - HAEMOGLOBIN DECREASED [None]
  - HYPOTENSION [None]
  - NAUSEA [None]
  - PYREXIA [None]
  - RASH PAPULAR [None]
  - SEPSIS [None]
  - VOMITING [None]
  - WHITE BLOOD CELL COUNT DECREASED [None]
